FAERS Safety Report 4382862-X (Version None)
Quarter: 2004Q2

REPORT INFORMATION
  Report Type: 
  Country: None (occurrence: None)
  Receive Date: 20040617
  Receipt Date: 20040611
  Transmission Date: 20050107
  Serious: Yes (Hospitalization, Other)
  Sender: FDA-Public Use
  Company Number: KII-2004-0011216

PATIENT
  Age: 55 Year
  Sex: Female

DRUGS (2)
  1. MORPHINE SULFATE [Suspect]
     Indication: PAIN
     Dosage: ORAL
     Route: 048
  2. ALCOHOL [Concomitant]

REACTIONS (12)
  - ALCOHOL WITHDRAWAL SYNDROME [None]
  - BOWEL SOUNDS ABNORMAL [None]
  - DISORIENTATION [None]
  - DRUG WITHDRAWAL SYNDROME [None]
  - HYPERTENSION [None]
  - MIOSIS [None]
  - OVERDOSE [None]
  - OXYGEN SATURATION DECREASED [None]
  - SEDATION [None]
  - TACHYCARDIA [None]
  - TREMOR [None]
  - VOMITING [None]
